FAERS Safety Report 14873334 (Version 1)
Quarter: 2018Q2

REPORT INFORMATION
  Report Type: Spontaneous
  Country: US (occurrence: US)
  Receive Date: 20180510
  Receipt Date: 20180510
  Transmission Date: 20180711
  Serious: No
  Sender: FDA-Public Use
  Company Number: US-PFIZER INC-2018052715

PATIENT
  Age: 52 Year
  Sex: Male

DRUGS (2)
  1. METHOTREXATE SODIUM. [Concomitant]
     Active Substance: METHOTREXATE SODIUM
     Indication: RHEUMATOID ARTHRITIS
     Dosage: UNK
  2. XELJANZ XR [Suspect]
     Active Substance: TOFACITINIB CITRATE
     Indication: PSORIATIC ARTHROPATHY
     Dosage: 11 MG, 1X/DAY (QUANTITY: 30 (30 DAYS)/14 DAYS, 14 TABLETS/UP TO 28 DAYS, 28 TABLETS]
     Route: 048

REACTIONS (5)
  - Pain [Unknown]
  - Chills [Unknown]
  - Pyrexia [Unknown]
  - Influenza like illness [Unknown]
  - Fatigue [Unknown]
